FAERS Safety Report 12172379 (Version 1)
Quarter: 2016Q1

REPORT INFORMATION
  Report Type: Spontaneous
  Country: ES (occurrence: ES)
  Receive Date: 20160311
  Receipt Date: 20160311
  Transmission Date: 20160526
  Serious: Yes (Death, Life-Threatening)
  Sender: FDA-Public Use
  Company Number: ES-ROXANE LABORATORIES, INC.-2016-RO-00444RO

PATIENT
  Age: 65 Year
  Sex: Female

DRUGS (4)
  1. DEXAMETHASONE TABLETS USP, 1.5 MG [Suspect]
     Active Substance: DEXAMETHASONE
     Indication: NON-SMALL CELL LUNG CANCER METASTATIC
     Route: 048
     Dates: end: 201306
  2. GEFITINIB [Suspect]
     Active Substance: GEFITINIB
     Indication: EGFR GENE MUTATION
     Route: 065
     Dates: start: 201303
  3. ZOLEDRONIC ACID [Concomitant]
     Active Substance: ZOLEDRONIC ACID
     Indication: EGFR GENE MUTATION
     Route: 065
     Dates: start: 201303
  4. DEXAMETHASONE. [Suspect]
     Active Substance: DEXAMETHASONE
     Indication: NON-SMALL CELL LUNG CANCER METASTATIC
     Dosage: 12 MG
     Route: 042
     Dates: start: 20130227, end: 20130303

REACTIONS (2)
  - Emphysematous cystitis [Unknown]
  - Death [Fatal]

NARRATIVE: CASE EVENT DATE: 20130612
